FAERS Safety Report 6213360-6 (Version None)
Quarter: 2009Q2

REPORT INFORMATION
  Report Type: 
  Country: None (occurrence: None)
  Receive Date: 20090601
  Receipt Date: 20090427
  Transmission Date: 20091009
  Serious: Yes (Other)
  Sender: FDA-Public Use
  Company Number: GR-GDP-09405983

PATIENT
  Sex: Female

DRUGS (3)
  1. ADAFERIN    (ADAPALENE) 0.1% [Suspect]
     Indication: ACNE
     Dosage: 1 DF QOD TOPICAL
     Route: 061
     Dates: start: 20090220, end: 20090322
  2. SKINOREN (AZELAIC ACID) [Suspect]
     Indication: ACNE
     Dosage: 1 DF QOD TOPICAL
     Route: 061
     Dates: start: 20090220, end: 20090322
  3. VIBRAMYCIN [Suspect]
     Indication: ACNE
     Dosage: 1 DF QD ORAL
     Route: 048
     Dates: start: 20090220, end: 20090322

REACTIONS (4)
  - ABORTION SPONTANEOUS [None]
  - DRUG EXPOSURE DURING PREGNANCY [None]
  - HAEMORRHAGE [None]
  - PREGNANCY [None]
